FAERS Safety Report 5959406-1 (Version None)
Quarter: 2008Q4

REPORT INFORMATION
  Report Type: 
  Country: None (occurrence: None)
  Receive Date: 20081120
  Receipt Date: 20080828
  Transmission Date: 20090506
  Serious: No
  Sender: FDA-Public Use
  Company Number: A0744926A

PATIENT
  Age: 45 Year
  Sex: Female

DRUGS (3)
  1. VERAMYST [Suspect]
     Dosage: 2SPR AT NIGHT
     Route: 045
     Dates: start: 20080818, end: 20080826
  2. NEURONTIN [Concomitant]
  3. ULTRACET [Concomitant]

REACTIONS (4)
  - COUGH [None]
  - DRUG INEFFECTIVE [None]
  - OROPHARYNGEAL DISCOMFORT [None]
  - POSTNASAL DRIP [None]
